FAERS Safety Report 15423534 (Version 2)
Quarter: 2019Q2

REPORT INFORMATION
  Report Type: Spontaneous
  Country: US (occurrence: US)
  Receive Date: 20180925
  Receipt Date: 20190524
  Transmission Date: 20190711
  Serious: No
  Sender: FDA-Public Use
  Company Number: US-PFIZER INC-2018381594

PATIENT
  Age: 55 Year
  Sex: Male
  Weight: 93.89 kg

DRUGS (20)
  1. ALPRAZOLAM. [Suspect]
     Active Substance: ALPRAZOLAM
     Indication: ANXIETY
     Dosage: 0.25 MG, 2X/DAY (0.25 MG TABLET 0.25 MG ORAL BID (TWICE A DAY) (PRN: AS NEEDED) )
     Route: 048
  2. FENOFIBRATE. [Concomitant]
     Active Substance: FENOFIBRATE
     Dosage: 160 MG, DAILY
     Route: 048
  3. CLONIDINE. [Concomitant]
     Active Substance: CLONIDINE
     Dosage: 0.3 MG, 2X/DAY, (0.3 MG PO Q12H)
     Route: 048
  4. TRAZODONE [Concomitant]
     Active Substance: TRAZODONE HYDROCHLORIDE
     Indication: PAIN
     Dosage: 100 MG, 1X/DAY (100 MG PO BEDTIME PRN )
     Route: 048
  5. TIZANIDINE. [Concomitant]
     Active Substance: TIZANIDINE
     Dosage: 4 MG, 2X/DAY
     Route: 048
  6. LACTULOSE. [Concomitant]
     Active Substance: LACTULOSE
     Dosage: 20 G, 2X/DAY, (LACTULOSE 20 GRAM/30 ML SOLUTION/20 G PO BID (TWICE A DAY))
     Route: 048
  7. ESOMEPRAZOLE MAGNESIUM. [Concomitant]
     Active Substance: ESOMEPRAZOLE MAGNESIUM
     Dosage: 40 MG, DAILY
     Route: 048
  8. VALSARTAN. [Concomitant]
     Active Substance: VALSARTAN
     Dosage: 320 MG, DAILY
     Route: 048
  9. DIVALPROEX [Concomitant]
     Active Substance: DIVALPROEX SODIUM
     Dosage: 500 MG, 2X/DAY
     Route: 048
  10. ATORVASTATIN [Concomitant]
     Active Substance: ATORVASTATIN
     Dosage: 40 MG, DAILY
     Route: 048
  11. CYCLOBENZAPRINE. [Suspect]
     Active Substance: CYCLOBENZAPRINE
     Indication: MUSCLE DISORDER
     Dosage: 10 MG, 3X/DAY
  12. DICLOFENAC SODIUM. [Concomitant]
     Active Substance: DICLOFENAC SODIUM
     Dosage: 4 G, 3X/DAY
     Route: 061
  13. TOPAMAX [Concomitant]
     Active Substance: TOPIRAMATE
     Dosage: 100 MG, 2X/DAY
     Route: 048
  14. ASPIRIN [ACETYLSALICYLIC ACID] [Concomitant]
     Active Substance: ASPIRIN
     Dosage: 325 MG, DAILY
     Route: 048
  15. NIFEDIPINE. [Concomitant]
     Active Substance: NIFEDIPINE
     Dosage: 60 MG, DAILY
     Route: 048
  16. PERCOCET [Suspect]
     Active Substance: ACETAMINOPHEN\OXYCODONE HYDROCHLORIDE
     Indication: PAIN
     Dosage: 1 DF, 4X/DAY (1 TAB ORAL QID (FOUR TIMES DAY) (PRN: AS NEEDED), 10-325 MG TABLET)
     Route: 048
  17. LIDOCAINE. [Concomitant]
     Active Substance: LIDOCAINE
     Indication: PAIN
     Dosage: UNK, 3X/DAY (1 APPLIC TOPICAL TID (THREE TIMES A DAY) (PRN: AS NEEDED)
     Route: 061
  18. GABAPENTIN. [Concomitant]
     Active Substance: GABAPENTIN
     Dosage: 600 MG, 4X/DAY
     Route: 048
  19. DULOXETINE. [Concomitant]
     Active Substance: DULOXETINE
     Dosage: 60 MG, DAILY
     Route: 048
  20. ALBUTEROL SULFATE. [Concomitant]
     Active Substance: ALBUTEROL SULFATE
     Dosage: 360 UG, DAILY, (90 MCG INHALATION Q6H)
     Route: 055

REACTIONS (1)
  - Fall [Recovered/Resolved]
